FAERS Safety Report 16203907 (Version 1)
Quarter: 2019Q2

REPORT INFORMATION
  Report Type: Report from Study
  Country: DE (occurrence: DE)
  Receive Date: 20190416
  Receipt Date: 20190416
  Transmission Date: 20190711
  Serious: Yes (Hospitalization)
  Sender: FDA-Public Use
  Company Number: DE-ELI_LILLY_AND_COMPANY-DE201904002153

PATIENT
  Age: 81 Year
  Sex: Female

DRUGS (1)
  1. TERIPARATIDE [Suspect]
     Active Substance: TERIPARATIDE
     Indication: OSTEOPOROSIS
     Dosage: UNK UNK, DAILY
     Route: 058
     Dates: start: 20190321

REACTIONS (11)
  - Fall [Recovering/Resolving]
  - Face injury [Recovering/Resolving]
  - Asthenia [Not Recovered/Not Resolved]
  - Fall [Recovering/Resolving]
  - General physical health deterioration [Recovering/Resolving]
  - Eye swelling [Recovering/Resolving]
  - Chest injury [Recovering/Resolving]
  - Asthenia [Unknown]
  - Listless [Not Recovered/Not Resolved]
  - Fatigue [Recovering/Resolving]
  - Dizziness [Recovering/Resolving]

NARRATIVE: CASE EVENT DATE: 20190321
